FAERS Safety Report 23630959 (Version 1)
Quarter: 2024Q1

REPORT INFORMATION
  Report Type: Report from Study
  Country: US (occurrence: US)
  Receive Date: 20240314
  Receipt Date: 20240314
  Transmission Date: 20240409
  Serious: No
  Sender: FDA-Public Use
  Company Number: US-ALXN-A202101323

PATIENT
  Sex: Male

DRUGS (2)
  1. SOLIRIS [Suspect]
     Active Substance: ECULIZUMAB
     Indication: Neuromyelitis optica spectrum disorder
     Dosage: UNK
     Route: 065
  2. SOLIRIS [Suspect]
     Active Substance: ECULIZUMAB
     Dosage: 1200 MG, Q2W
     Route: 042
     Dates: start: 202011

REACTIONS (4)
  - Neuralgia [Not Recovered/Not Resolved]
  - Abdominal pain upper [Unknown]
  - Chest pain [Unknown]
  - Asthenia [Unknown]
